FAERS Safety Report 4996403-7 (Version None)
Quarter: 2006Q2

REPORT INFORMATION
  Report Type: 
  Country: None (occurrence: None)
  Receive Date: 20060505
  Receipt Date: 20060426
  Transmission Date: 20061013
  Serious: Yes (Hospitalization)
  Sender: FDA-Public Use
  Company Number: CIP06000958

PATIENT
  Age: 46 Year
  Sex: Female

DRUGS (3)
  1. FURADANTIN [Suspect]
     Indication: URINARY TRACT INFECTION
     Dosage: ORAL
     Route: 048
     Dates: start: 20060323, end: 20060323
  2. PROFENID ^AVENTIS PHARMA^ (KETOPROFEN) [Suspect]
     Indication: RENAL COLIC
     Dosage: ORAL
     Route: 048
     Dates: start: 20060323, end: 20060323
  3. SPASFON (PHLOROGLUCINOL, TRIMETHYLPHLOROGLUCINOL) [Suspect]
     Indication: RENAL COLIC
     Dosage: ORAL
     Route: 048
     Dates: start: 20060323, end: 20060323

REACTIONS (3)
  - HYPERSENSITIVITY [None]
  - PYELONEPHRITIS [None]
  - VOMITING [None]
